FAERS Safety Report 12570007 (Version 1)
Quarter: 2016Q3

REPORT INFORMATION
  Report Type: Spontaneous
  Country: US (occurrence: None)
  Receive Date: 20160718
  Receipt Date: 20160718
  Transmission Date: 20161109
  Serious: Yes (Disabling)
  Sender: FDA-Public Use
  Company Number: None

PATIENT
  Age: 53 Year
  Sex: Male
  Weight: 112.04 kg

DRUGS (6)
  1. DIAVAN HCT [Concomitant]
  2. METAFORMIN [Concomitant]
  3. VITAMIN D [Concomitant]
     Active Substance: CHOLECALCIFEROL
  4. CIMZIA [Suspect]
     Active Substance: CERTOLIZUMAB PEGOL
     Indication: ANKYLOSING SPONDYLITIS
     Dosage: 1 INJECTION 2WEEKS INJECTED UNDER THE SKIN
     Route: 058
     Dates: start: 20151115, end: 20160115
  5. LIPITOR [Concomitant]
     Active Substance: ATORVASTATIN CALCIUM
  6. IBOPHROFEN [Concomitant]

REACTIONS (4)
  - Rash [None]
  - Psoriasis [None]
  - Impaired work ability [None]
  - Bronchitis [None]

NARRATIVE: CASE EVENT DATE: 20160119
